FAERS Safety Report 11059370 (Version 2)
Quarter: 2017Q2

REPORT INFORMATION
  Report Type: Spontaneous
  Country: US (occurrence: US)
  Receive Date: 20150423
  Receipt Date: 20170406
  Transmission Date: 20170829
  Serious: Yes (Other)
  Sender: FDA-Public Use
  Company Number: US-JNJFOC-20150410874

PATIENT
  Age: 5 Year
  Sex: Male

DRUGS (1)
  1. RISPERDAL [Suspect]
     Active Substance: RISPERIDONE
     Indication: BIPOLAR DISORDER
     Dosage: VARYING DOSES OF 0.25,0.5 AND 1 MG
     Route: 048
     Dates: start: 20031001, end: 20050914

REACTIONS (6)
  - Overdose [Unknown]
  - Off label use [Unknown]
  - Sedation [Recovering/Resolving]
  - Gynaecomastia [Recovering/Resolving]
  - Abnormal weight gain [Unknown]
  - Drug prescribing error [Unknown]

NARRATIVE: CASE EVENT DATE: 200310
